FAERS Safety Report 4401292-5 (Version None)
Quarter: 2004Q3

REPORT INFORMATION
  Report Type: 
  Country: None (occurrence: None)
  Receive Date: 20040907
  Receipt Date: 20040212
  Transmission Date: 20050211
  Serious: Yes (Hospitalization)
  Sender: FDA-Public Use
  Company Number: US-BRISTOL-MYERS SQUIBB COMPANY-12504627

PATIENT
  Age: 79 Year
  Sex: Female
  Weight: 46 kg

DRUGS (8)
  1. COUMADIN [Suspect]
     Indication: ARRHYTHMIA
     Dosage: ON DISCHARGE: 2 MG AND 4 MG ALTERNATING DAILY; INCREASED TO 4 MG DAILY
     Route: 048
  2. DIGOXIN [Concomitant]
  3. ESTRACE [Concomitant]
  4. MAGNESIUM [Concomitant]
  5. KLOR-CON [Concomitant]
  6. NORVASC [Concomitant]
  7. ACTONEL [Concomitant]
  8. DETROL [Concomitant]
     Dosage: DOSAGE: 4 MG DAILY PRN

REACTIONS (4)
  - BLOOD PRESSURE INCREASED [None]
  - EMBOLECTOMY [None]
  - EPISTAXIS [None]
  - TRANSIENT ISCHAEMIC ATTACK [None]
